FAERS Safety Report 7825647-1 (Version None)
Quarter: 2011Q4

REPORT INFORMATION
  Report Type: 
  Country: None (occurrence: None)
  Receive Date: 20111019
  Receipt Date: 20111013
  Transmission Date: 20120403
  Serious: Yes (Other)
  Sender: FDA-Public Use
  Company Number: CHPA2011US14169

PATIENT
  Sex: Male

DRUGS (2)
  1. THERAPEUTIC MINERAL ICE [Suspect]
     Indication: BACK PAIN
     Dosage: UNK, UNK
     Route: 061
  2. THERAPEUTIC MINERAL ICE [Suspect]
     Dosage: UNK, TID
     Route: 061

REACTIONS (4)
  - DYSURIA [None]
  - PROSTATE CANCER [None]
  - EXPIRED DRUG ADMINISTERED [None]
  - PROSTATOMEGALY [None]
